FAERS Safety Report 7825381-8 (Version None)
Quarter: 2011Q4

REPORT INFORMATION
  Report Type: 
  Country: None (occurrence: None)
  Receive Date: 20111019
  Receipt Date: 20111011
  Transmission Date: 20120403
  Serious: Yes (Hospitalization)
  Sender: FDA-Public Use
  Company Number: PHHO2011GB17184

PATIENT
  Sex: Female
  Weight: 69.5 kg

DRUGS (4)
  1. FLUOROURACIL [Suspect]
     Indication: BREAST CANCER
     Dosage: 1100 MG, UNK
     Route: 042
     Dates: start: 20090915, end: 20090915
  2. METHOTREXATE [Suspect]
     Indication: BREAST CANCER
     Dosage: 90 MG, UNK
     Route: 042
     Dates: start: 20090915, end: 20090915
  3. NO TREATMENT RECEIVED [Suspect]
     Indication: BREAST CANCER
  4. CYCLOPHOSPHAMIDE [Suspect]
     Indication: BREAST CANCER
     Dosage: 1300 MG, UNK
     Route: 042
     Dates: start: 20090915, end: 20090915

REACTIONS (3)
  - MUCOSAL INFLAMMATION [None]
  - DIARRHOEA [None]
  - FEBRILE NEUTROPENIA [None]
